FAERS Safety Report 7262129-2 (Version None)
Quarter: 2011Q1

REPORT INFORMATION
  Report Type: 
  Country: None (occurrence: None)
  Receive Date: 20110130
  Receipt Date: 20101202
  Transmission Date: 20110831
  Serious: No
  Sender: FDA-Public Use
  Company Number: US-ABBOTT-10P-163-0689124-00

PATIENT
  Age: 50 Year
  Sex: Male

DRUGS (3)
  1. HUMIRA [Suspect]
     Indication: RHEUMATOID ARTHRITIS
     Dates: start: 20101007
  2. UNKNOWN MEDICATION [Concomitant]
     Indication: DEPRESSION
  3. BUSPAR [Concomitant]
     Indication: DEPRESSION

REACTIONS (3)
  - PAIN [None]
  - BACK PAIN [None]
  - PRODUCTIVE COUGH [None]
